FAERS Safety Report 7620050-1 (Version None)
Quarter: 2011Q3

REPORT INFORMATION
  Report Type: 
  Country: None (occurrence: None)
  Receive Date: 20110719
  Receipt Date: 20110713
  Transmission Date: 20111222
  Serious: No
  Sender: FDA-Public Use
  Company Number: US-PFIZER INC-2011155906

PATIENT
  Sex: Female
  Weight: 49.9 kg

DRUGS (4)
  1. ARTHROTEC [Suspect]
     Indication: ARTHRITIS
     Dosage: 75 MG, 2X/DAY
     Route: 048
     Dates: start: 20110708
  2. NEURONTIN [Concomitant]
  3. ARTHROTEC [Suspect]
     Dosage: 75 MG, 2X/DAY
     Route: 048
     Dates: start: 20110708
  4. HYDROCODONE [Concomitant]

REACTIONS (1)
  - NAUSEA [None]
